FAERS Safety Report 4283519-6 (Version None)
Quarter: 2004Q1

REPORT INFORMATION
  Report Type: 
  Country: None (occurrence: None)
  Receive Date: 20040202
  Receipt Date: 20040122
  Transmission Date: 20041129
  Serious: Yes (Hospitalization)
  Sender: FDA-Public Use
  Company Number: GB-BRISTOL-MYERS SQUIBB COMPANY-12483624

PATIENT
  Age: 66 Year
  Sex: Male
  Weight: 85 kg

DRUGS (10)
  1. CARBOPLATIN [Suspect]
     Indication: MESOTHELIOMA
     Dosage: CYCLE 1: 13-NOV-2003
     Route: 042
     Dates: start: 20031209, end: 20031209
  2. PEMETREXED DISODIUM [Suspect]
     Indication: MESOTHELIOMA
     Dosage: CYCLE 1: 13-NOV-2003
     Route: 042
     Dates: start: 20031209, end: 20031209
  3. VITAMIN B-12 [Concomitant]
  4. FOLIC ACID [Concomitant]
  5. DICLOFENAC SODIUM [Concomitant]
     Indication: PAIN
     Dates: start: 20030101
  6. GABAPENTIN [Concomitant]
     Indication: PAIN
     Dates: start: 20031017
  7. AMITRIPTYLINE [Concomitant]
     Indication: PAIN
     Dates: start: 20030101
  8. AMLODIPINE BESYLATE [Concomitant]
     Indication: CARDIAC DISORDER
     Dates: start: 20030101
  9. LANSOPRAZOLE [Concomitant]
     Indication: PROPHYLAXIS
     Dates: start: 20031201
  10. MORPHINE SULFATE [Concomitant]
     Indication: PAIN
     Dates: start: 20031115

REACTIONS (9)
  - ENCEPHALITIS VIRAL [None]
  - HAEMOGLOBIN DECREASED [None]
  - LYMPHOCYTE COUNT DECREASED [None]
  - MUCOSAL INFLAMMATION [None]
  - NEUTROPENIA [None]
  - PAIN [None]
  - PLATELET COUNT DECREASED [None]
  - RED BLOOD CELL COUNT DECREASED [None]
  - WHITE BLOOD CELL COUNT DECREASED [None]
